FAERS Safety Report 13619408 (Version 1)
Quarter: 2017Q2

REPORT INFORMATION
  Report Type: Spontaneous
  Country: US (occurrence: US)
  Receive Date: 20170606
  Receipt Date: 20170606
  Transmission Date: 20170830
  Serious: No
  Sender: FDA-Public Use
  Company Number: US-AMGEN-USASP2017008651

PATIENT
  Age: 76 Year
  Sex: Male
  Weight: 72.56 kg

DRUGS (3)
  1. PROCRIT [Suspect]
     Active Substance: ERYTHROPOIETIN
     Indication: LEUKAEMIA
     Dosage: 10,000 UNITS, QWK
     Route: 065
     Dates: start: 2016, end: 2016
  2. PROCRIT [Suspect]
     Active Substance: ERYTHROPOIETIN
     Indication: BLOOD PRODUCT TRANSFUSION DEPENDENT
     Dosage: 40,000 UNITS, QWK
     Route: 065
     Dates: start: 2016
  3. PROCRIT [Suspect]
     Active Substance: ERYTHROPOIETIN
     Indication: REFRACTORY CYTOPENIA WITH UNILINEAGE DYSPLASIA
     Dosage: 20,000 UNITS, QWK
     Route: 065
     Dates: start: 2016, end: 2016

REACTIONS (1)
  - Drug effect incomplete [Not Recovered/Not Resolved]

NARRATIVE: CASE EVENT DATE: 2016
